FAERS Safety Report 14021534 (Version 4)
Quarter: 2018Q1

REPORT INFORMATION
  Report Type: Report from Study
  Country: US (occurrence: US)
  Receive Date: 20170928
  Receipt Date: 20180315
  Transmission Date: 20180508
  Serious: Yes (Hospitalization)
  Sender: FDA-Public Use
  Company Number: US-CLOVIS ONCOLOGY-CLO-2017-000801

PATIENT
  Age: 75 Year
  Sex: Female

DRUGS (2)
  1. RUBRACA [Suspect]
     Active Substance: RUCAPARIB CAMSYLATE
     Dosage: 300 MG, BID
     Route: 048
     Dates: start: 20170721
  2. RUBRACA [Suspect]
     Active Substance: RUCAPARIB CAMSYLATE
     Indication: OVARIAN CANCER
     Dosage: 600 MG, BID
     Route: 048
     Dates: start: 20170721

REACTIONS (30)
  - Pneumonia [Recovered/Resolved]
  - Blood magnesium decreased [Unknown]
  - Urinary tract infection [Unknown]
  - Red blood cell count decreased [Unknown]
  - White blood cell count decreased [Unknown]
  - Fatigue [Unknown]
  - Cough [Unknown]
  - Blood pressure increased [Unknown]
  - Nasal congestion [Unknown]
  - Influenza [Recovered/Resolved]
  - Headache [Unknown]
  - Secretion discharge [Unknown]
  - Early satiety [Unknown]
  - Pollakiuria [Unknown]
  - Skin ulcer [Unknown]
  - Hot flush [Unknown]
  - Hiccups [Unknown]
  - Oral pain [Unknown]
  - Cystitis [Unknown]
  - Dysgeusia [Unknown]
  - Liver function test increased [Unknown]
  - Catheter removal [Unknown]
  - Back pain [Unknown]
  - Abdominal discomfort [Unknown]
  - Underdose [Unknown]
  - Drug dose omission [Unknown]
  - Dizziness [Recovered/Resolved]
  - Nausea [Unknown]
  - Vomiting [Unknown]
  - Dyspnoea [Unknown]

NARRATIVE: CASE EVENT DATE: 2017
